FAERS Safety Report 11191717 (Version 1)
Quarter: 2015Q2

REPORT INFORMATION
  Report Type: Spontaneous
  Country: FR (occurrence: None)
  Receive Date: 20150612
  Receipt Date: 20150612
  Transmission Date: 20150821
  Serious: Yes (Other)
  Sender: FDA-Public Use
  Company Number: 8028678

PATIENT
  Age: 76 Year
  Sex: Male

DRUGS (9)
  1. GELTIM (TIMOLOL MALEATE) (TIMOLOL MALEATE) [Suspect]
     Active Substance: TIMOLOL MALEATE
     Indication: GLAUCOMA
     Route: 047
     Dates: start: 20140813, end: 20141127
  2. TRAVATAN [Suspect]
     Active Substance: TRAVOPROST
     Indication: GLAUCOMA
     Route: 047
     Dates: end: 201403
  3. ALPHAGAN P [Concomitant]
     Active Substance: BRIMONIDINE TARTRATE
  4. LEVOTHYROX [Suspect]
     Active Substance: LEVOTHYROXINE
     Indication: PRODUCT USED FOR UNKNOWN INDICATION
     Route: 048
  5. METOPROLOL (METOPROLOL) (METOPROLOL) [Suspect]
     Active Substance: METOPROLOL
     Indication: HYPERTENSION
     Route: 048
  6. PRETERAX /01421201/(BI PREDONIUM) (INDAPAMIDE, PERINDOPRIL ERBUMINE) [Suspect]
     Active Substance: INDAPAMIDE\PERINDOPRIL
     Indication: HYPERTENSION
     Route: 048
  7. RYTHMOL [Suspect]
     Active Substance: PROPAFENONE HYDROCHLORIDE
     Indication: CARDIAC FAILURE
     Route: 048
  8. COMBIGAN (COMBIGAN) (TIMOLOL MALEATE, BRIMONIDINE TARTRATE) [Concomitant]
  9. COMBIGAN (COMBIGAN) (TIMOLOL MALEATE, BRIMONIDINE TARTRATE) [Concomitant]

REACTIONS (3)
  - Muscular weakness [None]
  - Myalgia [None]
  - Pruritus [None]

NARRATIVE: CASE EVENT DATE: 201411
